FAERS Safety Report 21698121 (Version 1)
Quarter: 2022Q4

REPORT INFORMATION
  Report Type: Spontaneous
  Country: US (occurrence: US)
  Receive Date: 20221208
  Receipt Date: 20221208
  Transmission Date: 20230113
  Serious: Yes (Other)
  Sender: FDA-Public Use
  Company Number: US-EyePoint Pharmaceuticals, Inc.-US-EYP-22-00124

PATIENT
  Sex: Female

DRUGS (2)
  1. YUTIQ [Suspect]
     Active Substance: FLUOCINOLONE ACETONIDE
     Indication: Product used for unknown indication
     Dosage: INTO THE RIGHT EYE/OD
     Route: 031
     Dates: start: 20220520, end: 20220520
  2. XARELTO [Concomitant]
     Active Substance: RIVAROXABAN
     Indication: Product used for unknown indication
     Route: 065

REACTIONS (2)
  - Macular oedema [Unknown]
  - Device dislocation [Unknown]
